FAERS Safety Report 9103914 (Version 1)
Quarter: 2013Q1

REPORT INFORMATION
  Report Type: Spontaneous
  Country: GB (occurrence: GB)
  Receive Date: 20130219
  Receipt Date: 20130219
  Transmission Date: 20140127
  Serious: Yes (Other)
  Sender: FDA-Public Use
  Company Number: GB-JNJFOC-20130207313

PATIENT
  Age: 55 Year
  Sex: Female

DRUGS (3)
  1. NICORETTE 4 MG GUM [Suspect]
     Indication: SMOKING CESSATION THERAPY
     Route: 048
  2. NICORETTE 2 MG GUM [Suspect]
     Indication: SMOKING CESSATION THERAPY
     Route: 048
  3. NICOTINE [Suspect]
     Indication: SMOKING CESSATION THERAPY
     Route: 048

REACTIONS (5)
  - Nicotine dependence [Unknown]
  - Overdose [Unknown]
  - Intentional drug misuse [Unknown]
  - Accidental exposure to product [Unknown]
  - Dizziness [Unknown]
